FAERS Safety Report 24217091 (Version 1)
Quarter: 2024Q3

REPORT INFORMATION
  Report Type: Spontaneous
  Country: US (occurrence: None)
  Receive Date: 20240816
  Receipt Date: 20240816
  Transmission Date: 20241016
  Serious: No
  Sender: ASTRAZENECA
  Company Number: 2024A179547

PATIENT

DRUGS (1)
  1. SAPHNELO [Suspect]
     Active Substance: ANIFROLUMAB-FNIA

REACTIONS (6)
  - Blister [Unknown]
  - Lip blister [Unknown]
  - Peripheral swelling [Unknown]
  - Erythema [Unknown]
  - Burning sensation [Unknown]
  - Bone pain [Unknown]
